FAERS Safety Report 6189939-7 (Version None)
Quarter: 2009Q2

REPORT INFORMATION
  Report Type: 
  Country: None (occurrence: None)
  Receive Date: 20090514
  Receipt Date: 20090511
  Transmission Date: 20091009
  Serious: Yes (Hospitalization)
  Sender: FDA-Public Use
  Company Number: JP-BAYER-200911453BYL

PATIENT
  Age: 75 Year
  Sex: Male

DRUGS (1)
  1. NEXAVAR [Suspect]
     Indication: RENAL CELL CARCINOMA STAGE IV
     Dosage: UNIT DOSE: 200 MG
     Route: 048
     Dates: start: 20090317, end: 20090421

REACTIONS (9)
  - ABDOMINAL PAIN [None]
  - BLOOD SODIUM DECREASED [None]
  - DEHYDRATION [None]
  - DYSPHONIA [None]
  - HYPERTENSION [None]
  - ILEUS [None]
  - PRESBYACUSIS [None]
  - TINNITUS [None]
  - VOMITING [None]
